FAERS Safety Report 8135849-5 (Version None)
Quarter: 2012Q1

REPORT INFORMATION
  Report Type: 
  Country: None (occurrence: None)
  Receive Date: 20120214
  Receipt Date: 20120208
  Transmission Date: 20120608
  Serious: Yes (Congenital Anomaly)
  Sender: FDA-Public Use
  Company Number: US-GLAXOSMITHKLINE-A0963966A

PATIENT
  Sex: Female

DRUGS (1)
  1. PAXIL [Suspect]
     Indication: PRODUCT USED FOR UNKNOWN INDICATION
     Dosage: 15MG PER DAY
     Route: 064
     Dates: start: 19971201

REACTIONS (5)
  - TALIPES [None]
  - CONGENITAL FOOT MALFORMATION [None]
  - FOETAL EXPOSURE DURING PREGNANCY [None]
  - CONGENITAL SPONDYLOLYSIS [None]
  - SPINA BIFIDA [None]
